FAERS Safety Report 13033569 (Version 1)
Quarter: 2016Q4

REPORT INFORMATION
  Report Type: Report from Study
  Country: BR (occurrence: BR)
  Receive Date: 20161216
  Receipt Date: 20161216
  Transmission Date: 20170207
  Serious: Yes (Other)
  Sender: FDA-Public Use
  Company Number: BR-BRISTOL-MYERS SQUIBB COMPANY-BMS-2016-105255

PATIENT
  Sex: Female

DRUGS (1)
  1. ABATACEPT [Suspect]
     Active Substance: ABATACEPT
     Indication: RHEUMATOID ARTHRITIS
     Dosage: UNK, QMO
     Route: 042
     Dates: start: 2016

REACTIONS (5)
  - Respiratory disorder [Recovering/Resolving]
  - Conjunctivitis [Recovering/Resolving]
  - Blood cholesterol increased [Recovering/Resolving]
  - Hypertension [Recovering/Resolving]
  - Dry skin [Recovering/Resolving]
